FAERS Safety Report 23437075 (Version 2)
Quarter: 2024Q1

REPORT INFORMATION
  Report Type: Report from Study
  Country: CA (occurrence: CA)
  Receive Date: 20240124
  Receipt Date: 20240321
  Transmission Date: 20240410
  Serious: Yes (Other)
  Sender: FDA-Public Use
  Company Number: CA-TAKEDA-2024TUS006016

PATIENT
  Sex: Female

DRUGS (2)
  1. VEDOLIZUMAB [Suspect]
     Active Substance: VEDOLIZUMAB
     Indication: Crohn^s disease
     Dosage: 300 MILLIGRAM
     Route: 042
     Dates: start: 20200311
  2. VEDOLIZUMAB [Suspect]
     Active Substance: VEDOLIZUMAB
     Indication: Crohn^s disease
     Dosage: 108 MILLIGRAM, Q2WEEKS
     Route: 058
     Dates: start: 20231106

REACTIONS (9)
  - Uveitis [Unknown]
  - Malaise [Unknown]
  - Mouth ulceration [Unknown]
  - Diarrhoea [Unknown]
  - General physical health deterioration [Unknown]
  - Abdominal mass [Unknown]
  - Product distribution issue [Unknown]
  - Abdominal pain [Unknown]
  - Arthralgia [Unknown]
